FAERS Safety Report 25616741 (Version 1)
Quarter: 2025Q3

REPORT INFORMATION
  Report Type: Report from Study
  Country: KR (occurrence: KR)
  Receive Date: 20250729
  Receipt Date: 20250729
  Transmission Date: 20251021
  Serious: Yes (Other)
  Sender: Vantive US Healthcare
  Company Number: KR-VANTIVE-2025VAN003384

PATIENT
  Age: 57 Year
  Sex: Female

DRUGS (2)
  1. CALCIUM CHLORIDE\DEXTROSE\MAGNESIUM CHLORIDE\SODIUM CHLORIDE [Suspect]
     Active Substance: CALCIUM CHLORIDE\DEXTROSE\MAGNESIUM CHLORIDE\SODIUM CHLORIDE
     Route: 033
     Dates: start: 20250212
  2. UNSPECIFIED INGREDIENT [Suspect]
     Active Substance: UNSPECIFIED INGREDIENT
     Route: 065

REACTIONS (4)
  - Sudden hearing loss [Recovering/Resolving]
  - Hypoglycaemia [Not Recovered/Not Resolved]
  - Hyperglycaemia [Unknown]
  - Hyperphosphataemia [Unknown]

NARRATIVE: CASE EVENT DATE: 20250721
